FAERS Safety Report 6760839-4 (Version None)
Quarter: 2010Q2

REPORT INFORMATION
  Report Type: 
  Country: None (occurrence: None)
  Receive Date: 20100608
  Receipt Date: 20100525
  Transmission Date: 20101027
  Serious: Yes (Other)
  Sender: FDA-Public Use
  Company Number: PHHY2010US34086

PATIENT
  Sex: Female

DRUGS (1)
  1. TEKTURNA [Suspect]
     Dosage: 150MG

REACTIONS (6)
  - DIARRHOEA [None]
  - DIZZINESS [None]
  - EAR DISCOMFORT [None]
  - PHARYNGEAL OEDEMA [None]
  - SENSATION OF PRESSURE [None]
  - SWOLLEN TONGUE [None]
